FAERS Safety Report 17160211 (Version 12)
Quarter: 2022Q2

REPORT INFORMATION
  Report Type: Report from Study
  Country: CA (occurrence: None)
  Receive Date: 20191216
  Receipt Date: 20220411
  Transmission Date: 20220720
  Serious: Yes (Hospitalization)
  Sender: FDA-Public Use
  Company Number: CA-EISAI MEDICAL RESEARCH-EC-2019-067106

PATIENT
  Age: 64 Year
  Sex: Female
  Weight: 83.8 kg

DRUGS (21)
  1. LENVATINIB [Suspect]
     Active Substance: LENVATINIB
     Indication: Triple negative breast cancer
     Route: 048
     Dates: start: 20191112, end: 20191125
  2. LENVATINIB [Suspect]
     Active Substance: LENVATINIB
     Route: 048
     Dates: start: 20191203, end: 20191208
  3. PEMBROLIZUMAB [Suspect]
     Active Substance: PEMBROLIZUMAB
     Indication: Triple negative breast cancer
     Route: 041
     Dates: start: 20191112, end: 20191112
  4. PEMBROLIZUMAB [Suspect]
     Active Substance: PEMBROLIZUMAB
     Route: 041
     Dates: start: 20200204
  5. ESTRADIOL [Concomitant]
     Active Substance: ESTRADIOL
     Dates: start: 201401
  6. KETOPROFEN [Concomitant]
     Active Substance: KETOPROFEN
     Dates: start: 20191104
  7. PANTOPRAZOLE [Concomitant]
     Active Substance: PANTOPRAZOLE
     Dates: start: 20191104, end: 20191125
  8. SENOKOT [Concomitant]
     Active Substance: SENNOSIDES
     Dates: start: 201701
  9. POLYETHYLENE GLYCOL 3350 [Concomitant]
     Active Substance: POLYETHYLENE GLYCOL 3350
     Dates: start: 201701
  10. HYDROMORPHONE [Concomitant]
     Active Substance: HYDROMORPHONE
     Dates: start: 20191004
  11. HYDROMORPHONE [Concomitant]
     Active Substance: HYDROMORPHONE
     Dates: start: 20191114
  12. TYLENOL [Concomitant]
     Active Substance: ACETAMINOPHEN
     Dates: start: 201811
  13. NORTRIPTYLINE [Concomitant]
     Active Substance: NORTRIPTYLINE
     Dates: start: 201901
  14. SLOW-K [Concomitant]
     Active Substance: POTASSIUM CHLORIDE
     Dates: start: 20191202
  15. PANTOPRAZOLE SODIUM [Concomitant]
     Active Substance: PANTOPRAZOLE SODIUM
     Dates: start: 20191126
  16. PREDNISONE [Concomitant]
     Active Substance: PREDNISONE
     Dates: start: 20191126, end: 20191127
  17. PREDNISONE [Concomitant]
     Active Substance: PREDNISONE
     Dates: start: 20191128, end: 20191130
  18. PREDNISONE [Concomitant]
     Active Substance: PREDNISONE
     Dates: start: 20191201, end: 20191201
  19. PREDNISONE [Concomitant]
     Active Substance: PREDNISONE
     Dates: start: 20191202, end: 20191204
  20. PREDNISONE [Concomitant]
     Active Substance: PREDNISONE
     Dates: start: 20191205, end: 20191207
  21. PREDNISONE [Concomitant]
     Active Substance: PREDNISONE
     Dates: start: 20191208, end: 20191208

REACTIONS (1)
  - Diarrhoea [Recovered/Resolved]

NARRATIVE: CASE EVENT DATE: 20191209
